FAERS Safety Report 9443653 (Version 1)
Quarter: 2013Q3

REPORT INFORMATION
  Report Type: Spontaneous
  Country: US (occurrence: US)
  Receive Date: 20130806
  Receipt Date: 20130806
  Transmission Date: 20140515
  Serious: No
  Sender: FDA-Public Use
  Company Number: US-PFIZER INC-2013227996

PATIENT
  Sex: 0

DRUGS (1)
  1. LYRICA [Suspect]
     Indication: HYPOAESTHESIA
     Dosage: UNK

REACTIONS (3)
  - Hypoaesthesia [Unknown]
  - Pain in extremity [Unknown]
  - Memory impairment [Unknown]
